FAERS Safety Report 13337136 (Version 1)
Quarter: 2017Q1

REPORT INFORMATION
  Report Type: Spontaneous
  Country: US (occurrence: US)
  Receive Date: 20170314
  Receipt Date: 20170314
  Transmission Date: 20170428
  Serious: Yes (Death, Other)
  Sender: FDA-Public Use
  Company Number: US-JAZZ-2016-US-019669

PATIENT
  Age: 24 Year
  Sex: Male

DRUGS (3)
  1. MODAFINIL. [Concomitant]
     Active Substance: MODAFINIL
     Dosage: 200 MG, QD
  2. CLOZAPINE. [Suspect]
     Active Substance: CLOZAPINE
     Indication: SCHIZOPHRENIA
     Dosage: 300 MG, QD (ONCE AT BEDTIME)
     Route: 048
  3. CITALOPRAM [Concomitant]
     Active Substance: CITALOPRAM HYDROBROMIDE
     Dosage: 40 MG, QD

REACTIONS (2)
  - Sedation [Unknown]
  - Completed suicide [Fatal]
